FAERS Safety Report 5848331-2 (Version None)
Quarter: 2008Q3

REPORT INFORMATION
  Report Type: 
  Country: None (occurrence: None)
  Receive Date: 20080814
  Receipt Date: 20080814
  Transmission Date: 20090109
  Serious: Yes (Hospitalization)
  Sender: FDA-Public Use
  Company Number: None

PATIENT
  Sex: Male
  Weight: 46.2669 kg

DRUGS (1)
  1. VYVANSE [Suspect]
     Indication: ATTENTION DEFICIT/HYPERACTIVITY DISORDER
     Dosage: 30 MG QD PO
     Route: 048
     Dates: start: 20080811, end: 20080811

REACTIONS (8)
  - BLINDNESS TRANSIENT [None]
  - BLOOD UREA INCREASED [None]
  - BRAIN OEDEMA [None]
  - DISORIENTATION [None]
  - DYSARTHRIA [None]
  - HEADACHE [None]
  - MENTAL STATUS CHANGES [None]
  - PARAESTHESIA [None]
